FAERS Safety Report 9548547 (Version 2)
Quarter: 2013Q4

REPORT INFORMATION
  Report Type: Spontaneous
  Country: US (occurrence: US)
  Receive Date: 20130924
  Receipt Date: 20131010
  Transmission Date: 20140711
  Serious: No
  Sender: FDA-Public Use
  Company Number: US-PFIZER INC-2013271680

PATIENT
  Age: 60 Year
  Sex: 0

DRUGS (2)
  1. VIAGRA [Suspect]
     Dosage: 100 MG, AS NEEDED
     Route: 048
  2. ARTHROTEC [Suspect]
     Dosage: UNK

REACTIONS (1)
  - Arthritis [Unknown]
